FAERS Safety Report 7666516-X (Version None)
Quarter: 2011Q3

REPORT INFORMATION
  Report Type: 
  Country: None (occurrence: None)
  Receive Date: 20110806
  Receipt Date: 20110415
  Transmission Date: 20111222
  Serious: No
  Sender: FDA-Public Use
  Company Number: US-ABBOTT-11P-163-0720515-00

PATIENT
  Sex: Male
  Weight: 101.24 kg

DRUGS (9)
  1. METFORMIN HCL [Concomitant]
     Indication: DIABETES MELLITUS
  2. NIASPAN [Suspect]
     Indication: BLOOD CHOLESTEROL
     Dates: start: 20010101
  3. AVODART [Concomitant]
     Indication: PROSTATOMEGALY
  4. TRAMADOL HCL [Concomitant]
     Indication: NECK PAIN
  5. TOPROL-XL [Concomitant]
     Indication: HYPERTENSION
  6. TRICOR [Concomitant]
     Indication: BLOOD CHOLESTEROL
  7. ASPIRIN [Concomitant]
     Indication: PRODUCT USED FOR UNKNOWN INDICATION
  8. BENAZEPRIL HYDROCHLORIDE [Concomitant]
     Indication: HYPERTENSION
  9. NEXIUM [Concomitant]
     Indication: GASTROOESOPHAGEAL REFLUX DISEASE

REACTIONS (3)
  - ERYTHEMA [None]
  - SUNBURN [None]
  - FLUSHING [None]
